FAERS Safety Report 8819900 (Version 1)
Quarter: 2012Q4

REPORT INFORMATION
  Report Type: 
  Country: US (occurrence: US)
  Receive Date: 20121001
  Receipt Date: 20121001
  Transmission Date: 20130627
  Serious: No
  Sender: FDA-Public Use
  Company Number: US-009507513-1209USA009533

PATIENT
  Sex: Female

DRUGS (3)
  1. ZETIA [Suspect]
     Dosage: UNK
     Route: 048
  2. CRESTOR [Concomitant]
  3. TRICOR (ADENOSINE) [Concomitant]

REACTIONS (2)
  - Drug ineffective [Unknown]
  - Low density lipoprotein abnormal [Unknown]
